FAERS Safety Report 8477337-2 (Version None)
Quarter: 2012Q2

REPORT INFORMATION
  Report Type: 
  Country: None (occurrence: None)
  Receive Date: 20120620
  Receipt Date: 20120607
  Transmission Date: 20120825
  Serious: Yes (Other)
  Sender: FDA-Public Use
  Company Number: US-1192658

PATIENT
  Age: 68 Year
  Sex: Female
  Weight: 61.2356 kg

DRUGS (6)
  1. NEVANAC [Suspect]
     Indication: INTRAOCULAR LENS IMPLANT
     Dosage: (OPHTHALMIC)
     Route: 047
     Dates: start: 20120515, end: 20120515
  2. EPINEPHRINE [Concomitant]
  3. BSS [Suspect]
     Indication: INTRAOCULAR LENS IMPLANT
     Dosage: (INTRAOCULAR)
     Route: 012
     Dates: start: 20120515, end: 20120515
  4. BETADINE [Suspect]
     Indication: INTRAOCULAR LENS IMPLANT
     Dosage: (OPHTHALMIC)
     Route: 047
     Dates: start: 20120515, end: 20120515
  5. VIGAMOX [Suspect]
     Indication: INTRAOCULAR LENS IMPLANT
     Dosage: (OPHTHALMIC)
     Route: 047
     Dates: start: 20120515, end: 20120515
  6. BSS [Suspect]
     Indication: INTRAOCULAR LENS IMPLANT
     Dosage: INTRAOCULAR
     Route: 031
     Dates: start: 20120515, end: 20120515

REACTIONS (2)
  - MEDICATION ERROR [None]
  - TOXIC ANTERIOR SEGMENT SYNDROME [None]
